FAERS Safety Report 15157969 (Version 1)
Quarter: 2018Q3

REPORT INFORMATION
  Report Type: Spontaneous
  Country: US (occurrence: US)
  Receive Date: 20180620
  Receipt Date: 20180620
  Transmission Date: 20181010
  Serious: Yes (Death)
  Sender: FDA-Public Use
  Company Number: None

PATIENT
  Age: 77 Year
  Sex: Male

DRUGS (2)
  1. PEMBROLIZUMAB. [Suspect]
     Active Substance: PEMBROLIZUMAB
  2. AZACITIDINE. [Suspect]
     Active Substance: AZACITIDINE

REACTIONS (7)
  - Mental disorder [None]
  - Tachypnoea [None]
  - Hypoxia [None]
  - Fall [None]
  - Pneumonia [None]
  - Pyrexia [None]
  - Drug dose omission [None]

NARRATIVE: CASE EVENT DATE: 20180619
